FAERS Safety Report 8086382-0 (Version None)
Quarter: 2012Q1

REPORT INFORMATION
  Report Type: 
  Country: None (occurrence: None)
  Receive Date: 20120128
  Receipt Date: 20110505
  Transmission Date: 20120608
  Serious: No
  Sender: FDA-Public Use
  Company Number: US-ABBOTT-11P-163-0723755-00

PATIENT
  Age: 47 Year
  Sex: Female

DRUGS (11)
  1. DIGESTIN [Concomitant]
     Indication: HOMEOPATHY
  2. VITAMIN B-12 [Concomitant]
     Indication: HOMEOPATHY
     Route: 048
  3. HUMIRA [Suspect]
     Indication: RHEUMATOID ARTHRITIS
     Dates: start: 20110401
  4. BIOINFLAMMATORY SUPPLEMENT [Concomitant]
     Indication: HOMEOPATHY
  5. ARGENTYN 23 [Concomitant]
     Indication: HOMEOPATHY
  6. HUMIRA [Suspect]
     Indication: RHEUMATOID ARTHRITIS
     Dates: start: 20110301, end: 20110401
  7. HUMIRA [Suspect]
  8. OPTICLEANSE [Concomitant]
     Indication: HOMEOPATHY
  9. PROBIOTICS [Concomitant]
     Indication: HOMEOPATHY
  10. CORTISOL [Concomitant]
     Indication: HOMEOPATHY
     Dosage: CONTROL SUPPLEMENT
  11. VIRAL GTTS [Concomitant]
     Indication: HOMEOPATHY

REACTIONS (4)
  - MYALGIA [None]
  - RHEUMATOID ARTHRITIS [None]
  - DRUG INEFFECTIVE [None]
  - ARTHRALGIA [None]
